FAERS Safety Report 6030145-4 (Version None)
Quarter: 2009Q1

REPORT INFORMATION
  Report Type: 
  Country: None (occurrence: None)
  Receive Date: 20090106
  Receipt Date: 20090106
  Transmission Date: 20090719
  Serious: Yes (Hospitalization)
  Sender: FDA-Public Use
  Company Number: None

PATIENT
  Age: 65 Year
  Sex: Male

DRUGS (2)
  1. WARFARIN SODIUM [Suspect]
     Indication: ATRIAL FIBRILLATION
     Dosage: 7.5 MG EVERY DAY PO
     Route: 048
     Dates: start: 20081022
  2. WARFARIN SODIUM [Suspect]
     Indication: VENTRICULAR TACHYCARDIA
     Dosage: 7.5 MG EVERY DAY PO
     Route: 048
     Dates: start: 20081022

REACTIONS (2)
  - INTERNATIONAL NORMALISED RATIO ABNORMAL [None]
  - UPPER GASTROINTESTINAL HAEMORRHAGE [None]
